APPROVED DRUG PRODUCT: INDOMETHACIN
Active Ingredient: INDOMETHACIN
Strength: 25MG
Dosage Form/Route: CAPSULE;ORAL
Application: A070900 | Product #002
Applicant: SUN PHARMACEUTICAL INDUSTRIES INC
Approved: Feb 9, 1987 | RLD: No | RS: No | Type: DISCN